FAERS Safety Report 8492219-8 (Version None)
Quarter: 2012Q3

REPORT INFORMATION
  Report Type: 
  Country: None (occurrence: None)
  Receive Date: 20120706
  Receipt Date: 20120627
  Transmission Date: 20120928
  Serious: Yes (Hospitalization)
  Sender: FDA-Public Use
  Company Number: FR-ABBOTT-12P-056-0947404-00

PATIENT
  Sex: Female

DRUGS (7)
  1. LANSOPRAZOLE [Suspect]
     Indication: PRODUCT USED FOR UNKNOWN INDICATION
     Route: 048
  2. INDOMETHACIN [Suspect]
     Indication: ANKYLOSING SPONDYLITIS
     Route: 048
  3. ENBREL [Concomitant]
     Indication: PRODUCT USED FOR UNKNOWN INDICATION
     Dosage: ENBREL PREVIOUSLY RECIEVED FOR 2 YEARS
  4. ACETAMINOPHEN [Suspect]
     Indication: PRODUCT USED FOR UNKNOWN INDICATION
  5. HUMIRA [Suspect]
     Indication: ANKYLOSING SPONDYLITIS
     Route: 058
     Dates: start: 20110901, end: 20120501
  6. METHOTREXATE [Concomitant]
     Indication: CYTOLYTIC HEPATITIS
     Dates: end: 20060801
  7. REMICADE [Concomitant]
     Indication: PRODUCT USED FOR UNKNOWN INDICATION
     Dosage: 42 INFUSIONS OF REMICADE RECEIVED PREVIOUSLY

REACTIONS (1)
  - OSTEONECROSIS [None]
